FAERS Safety Report 9138032 (Version 1)
Quarter: 2013Q1

REPORT INFORMATION
  Report Type: Spontaneous
  Country: US (occurrence: US)
  Receive Date: 20130304
  Receipt Date: 20130304
  Transmission Date: 20140127
  Serious: Yes (Other)
  Sender: FDA-Public Use
  Company Number: US-ASTRAZENECA-2013SE12372

PATIENT
  Age: 57 Year
  Sex: Female

DRUGS (1)
  1. SYMBICORT PMDI [Suspect]
     Indication: ASTHMA
     Route: 055

REACTIONS (2)
  - Pneumonia [Unknown]
  - Drug dose omission [Unknown]
